FAERS Safety Report 16902186 (Version 1)
Quarter: 2019Q4

REPORT INFORMATION
  Report Type: Report from Study
  Country: None (occurrence: CO)
  Receive Date: 20191010
  Receipt Date: 20191010
  Transmission Date: 20200122
  Serious: Yes (Hospitalization)
  Sender: FDA-Public Use
  Company Number: CO-ABBVIE-19K-036-2889526-00

PATIENT
  Age: 28 Year
  Sex: Female
  Weight: 47 kg

DRUGS (2)
  1. HUMIRA [Suspect]
     Active Substance: ADALIMUMAB
     Indication: RHEUMATOID ARTHRITIS
     Route: 058
     Dates: start: 20090304
  2. HUMIRA [Suspect]
     Active Substance: ADALIMUMAB
     Indication: RHEUMATOID ARTHRITIS
     Route: 058
     Dates: end: 20190610

REACTIONS (6)
  - Headache [Recovering/Resolving]
  - Dizziness [Recovering/Resolving]
  - Somnolence [Recovering/Resolving]
  - Abortion spontaneous [Unknown]
  - Maternal exposure during pregnancy [Unknown]
  - Amenorrhoea [Recovering/Resolving]

NARRATIVE: CASE EVENT DATE: 20190718
